FAERS Safety Report 9753233 (Version 2)
Quarter: 2015Q3

REPORT INFORMATION
  Report Type: Spontaneous
  Country: US (occurrence: US)
  Receive Date: 20131213
  Receipt Date: 20150805
  Transmission Date: 20151125
  Serious: No
  Sender: FDA-Public Use
  Company Number: US-GILEAD-2010-0027623

PATIENT
  Age: 53 Year
  Sex: Female
  Weight: 81.65 kg

DRUGS (18)
  1. CLARITIN [Concomitant]
     Active Substance: LORATADINE
  2. BENADRYL [Concomitant]
     Active Substance: DIPHENHYDRAMINE HYDROCHLORIDE
  3. TENORMIN [Concomitant]
     Active Substance: ATENOLOL
  4. ASPIRIN. [Concomitant]
     Active Substance: ASPIRIN
  5. COENZYME [Concomitant]
     Active Substance: UBIDECARENONE
  6. ALLEGRA [Concomitant]
     Active Substance: FEXOFENADINE HYDROCHLORIDE
  7. FLAXSEED [Concomitant]
     Active Substance: FLAX SEED
  8. OMEGA-3 ACIDS [Concomitant]
     Active Substance: OMEGA-3 FATTY ACIDS
  9. ZOLOFT [Concomitant]
     Active Substance: SERTRALINE HYDROCHLORIDE
  10. TYLENOL EXTRA STRENGTH [Concomitant]
     Active Substance: ACETAMINOPHEN
  11. BUSPAR [Concomitant]
     Active Substance: BUSPIRONE HYDROCHLORIDE
  12. HYDROCHLOROTHIAZIDE. [Concomitant]
     Active Substance: HYDROCHLOROTHIAZIDE
  13. ALBUTEROL. [Concomitant]
     Active Substance: ALBUTEROL
  14. LETAIRIS [Suspect]
     Active Substance: AMBRISENTAN
     Indication: PULMONARY ARTERIAL HYPERTENSION
     Route: 048
     Dates: start: 20080820
  15. VERAMYST [Concomitant]
     Active Substance: FLUTICASONE FUROATE
  16. FLONASE [Concomitant]
     Active Substance: FLUTICASONE PROPIONATE
  17. L-ARGININE [Concomitant]
     Active Substance: ARGININE
  18. MULTIVITAMIN [Concomitant]
     Active Substance: VITAMINS

REACTIONS (1)
  - Chest pain [Unknown]
